FAERS Safety Report 6578020-0 (Version None)
Quarter: 2010Q1

REPORT INFORMATION
  Report Type: 
  Country: None (occurrence: None)
  Receive Date: 20100211
  Receipt Date: 20091231
  Transmission Date: 20100710
  Serious: Yes (Other)
  Sender: FDA-Public Use
  Company Number: US-BRISTOL-MYERS SQUIBB COMPANY-14904692

PATIENT
  Age: 60 Year
  Sex: Female

DRUGS (4)
  1. IXEMPRA KIT [Suspect]
     Indication: BREAST CANCER
     Route: 042
     Dates: start: 20091124
  2. BENADRYL [Concomitant]
     Indication: PREMEDICATION
     Route: 042
  3. DECADRON [Concomitant]
     Indication: PREMEDICATION
     Route: 042
  4. CIMETIDINE [Concomitant]
     Indication: PREMEDICATION
     Route: 042

REACTIONS (2)
  - DYSPNOEA [None]
  - TACHYCARDIA [None]
